FAERS Safety Report 8555984-7 (Version None)
Quarter: 2012Q3

REPORT INFORMATION
  Report Type: 
  Country: None (occurrence: None)
  Receive Date: 20120801
  Receipt Date: 20120723
  Transmission Date: 20120928
  Serious: Yes (Life-Threatening, Hospitalization)
  Sender: FDA-Public Use
  Company Number: US-009507513-1207USA010807

PATIENT

DRUGS (1)
  1. ZOCOR [Suspect]
     Dosage: 80 MG, UNK
     Route: 048

REACTIONS (2)
  - RHABDOMYOLYSIS [None]
  - DIZZINESS [None]
